FAERS Safety Report 12174737 (Version 3)
Quarter: 2016Q2

REPORT INFORMATION
  Report Type: Spontaneous
  Country: JP (occurrence: JP)
  Receive Date: 20160314
  Receipt Date: 20160503
  Transmission Date: 20160815
  Serious: Yes (Other)
  Sender: FDA-Public Use
  Company Number: JP-ROCHE-1724544

PATIENT
  Age: 42 Year
  Sex: Male

DRUGS (5)
  1. DIDANOSINE. [Interacting]
     Active Substance: DIDANOSINE
     Indication: HIV INFECTION
     Dosage: DOSAGE IS UNCERTAIN.
     Route: 065
  2. STAVUDINE. [Concomitant]
     Active Substance: STAVUDINE
  3. PEGINTRON [Suspect]
     Active Substance: PEGINTERFERON ALFA-2B
     Indication: HEPATITIS C
     Dosage: DOSAGE IS UNCERTAIN.
     Route: 058
  4. EFAVIRENZ [Concomitant]
     Active Substance: EFAVIRENZ
  5. REBETOL [Suspect]
     Active Substance: RIBAVIRIN
     Indication: HEPATITIS C
     Dosage: THE FRACTIONATION DOSE FREQUENCY IS UNCERTAIN.
     Route: 048

REACTIONS (3)
  - Vomiting [Unknown]
  - Lactic acidosis [Unknown]
  - Nausea [Unknown]
